FAERS Safety Report 11925492 (Version 1)
Quarter: 2016Q1

REPORT INFORMATION
  Report Type: Spontaneous
  Country: US (occurrence: US)
  Receive Date: 20160118
  Receipt Date: 20160118
  Transmission Date: 20160526
  Serious: Yes (Death)
  Sender: FDA-Public Use
  Company Number: US-INSYS THERAPEUTICS, INC-INS201601-000011

PATIENT
  Age: 53 Year
  Sex: Male

DRUGS (5)
  1. FENTANYL. [Concomitant]
     Active Substance: FENTANYL
  2. ATIVAN [Concomitant]
     Active Substance: LORAZEPAM
     Indication: NAUSEA
  3. MARINOL [Concomitant]
     Active Substance: DRONABINOL
  4. SUBSYS [Suspect]
     Active Substance: FENTANYL
     Indication: BREAKTHROUGH PAIN
     Route: 060
     Dates: start: 20140112
  5. FENTANYL. [Concomitant]
     Active Substance: FENTANYL
     Indication: BREAKTHROUGH PAIN

REACTIONS (2)
  - Disease progression [Fatal]
  - Metabolic acidosis [Fatal]

NARRATIVE: CASE EVENT DATE: 20140307
